FAERS Safety Report 23093059 (Version 1)
Quarter: 2023Q4

REPORT INFORMATION
  Report Type: Spontaneous
  Country: GB (occurrence: GB)
  Receive Date: 20231021
  Receipt Date: 20231021
  Transmission Date: 20240110
  Serious: Yes (Disabling)
  Sender: FDA-Public Use
  Company Number: None

PATIENT
  Age: 88 Year
  Sex: Female
  Weight: 54 kg

DRUGS (9)
  1. SOLIFENACIN [Suspect]
     Active Substance: SOLIFENACIN
     Indication: Ill-defined disorder
     Dates: start: 20230926
  2. SOLIFENACIN [Suspect]
     Active Substance: SOLIFENACIN
     Indication: Ill-defined disorder
     Dosage: 1 DOSAGE FORMS DAILY; TAKE ONE DAILY
     Dates: start: 20230914
  3. ATORVASTATIN [Concomitant]
     Active Substance: ATORVASTATIN
     Indication: Ill-defined disorder
     Dosage: 1 DOSAGE FORMS DAILY; TAKE ONE EACH NIGHT (TO HELP REDUCE CHOLESTEROL
     Dates: start: 20220718
  4. ATORVASTATIN [Concomitant]
     Active Substance: ATORVASTATIN
     Indication: Blood cholesterol
  5. BRINZOLAMIDE [Concomitant]
     Active Substance: BRINZOLAMIDE
     Indication: Ill-defined disorder
     Dosage: 4 DOSAGE FORMS DAILY; ONE DROP TWICE DAILY BOTH EYES
     Route: 047
     Dates: start: 20230429
  6. CHOLECALCIFEROL [Concomitant]
     Active Substance: CHOLECALCIFEROL
     Indication: Ill-defined disorder
     Dosage: 1 DOSAGE FORMS DAILY; 1 DAILY
     Dates: start: 20220718
  7. DONEPEZIL HYDROCHLORIDE [Concomitant]
     Active Substance: DONEPEZIL HYDROCHLORIDE
     Indication: Ill-defined disorder
     Dosage: 5 MILLIGRAM DAILY; TAKE ONE TABLET (5MG) DAILY
     Dates: start: 20230912
  8. TIMOLOL [Concomitant]
     Active Substance: TIMOLOL
     Indication: Ill-defined disorder
     Dosage: 2 DOSAGE FORMS DAILY; ONE DROP ONCE DAILY AT BEDTIME TO BOTH EYES
     Route: 047
     Dates: start: 20230429
  9. LATANOPROST\TIMOLOL MALEATE [Concomitant]
     Active Substance: LATANOPROST\TIMOLOL MALEATE
     Indication: Ill-defined disorder
     Dosage: 2 DOSAGE FORMS DAILY; ONE DROP ONCE DAILY AT BEDTIME TO BOTH EYES
     Route: 047
     Dates: start: 20230721, end: 20230818

REACTIONS (1)
  - Oral mucosal blistering [Recovered/Resolved]

NARRATIVE: CASE EVENT DATE: 20230926
